FAERS Safety Report 7969227-6 (Version None)
Quarter: 2011Q4

REPORT INFORMATION
  Report Type: 
  Country: None (occurrence: None)
  Receive Date: 20111209
  Receipt Date: 20111202
  Transmission Date: 20120403
  Serious: Yes (Other)
  Sender: FDA-Public Use
  Company Number: JP-MERCK-1112USA00668

PATIENT
  Age: 62 Year
  Sex: Female

DRUGS (11)
  1. LEBENIN [Concomitant]
     Route: 065
  2. LASIX [Suspect]
     Indication: HYPERTENSION
     Route: 048
     Dates: end: 20111107
  3. CEFAZOLIN SODIUM [Concomitant]
     Route: 065
  4. LANIRAPID [Concomitant]
     Route: 065
  5. JANUVIA [Suspect]
     Indication: TYPE 2 DIABETES MELLITUS
     Route: 048
     Dates: start: 20100826, end: 20111107
  6. SPIRONOLACTONE [Concomitant]
     Route: 065
  7. DIART [Suspect]
     Route: 048
     Dates: end: 20111107
  8. METFORMIN HCL [Concomitant]
     Route: 065
  9. ACTOS [Suspect]
     Indication: TYPE 2 DIABETES MELLITUS
     Route: 048
     Dates: end: 20111107
  10. ISOSORBIDE DINITRATE [Concomitant]
     Route: 065
  11. DIMELIN [Concomitant]
     Route: 065

REACTIONS (1)
  - RED BLOOD CELL COUNT DECREASED [None]
